FAERS Safety Report 4461324-5 (Version None)
Quarter: 2004Q3

REPORT INFORMATION
  Report Type: 
  Country: None (occurrence: None)
  Receive Date: 20040902
  Receipt Date: 20040825
  Transmission Date: 20050211
  Serious: Yes (Death, Hospitalization)
  Sender: FDA-Public Use
  Company Number: 2004-02878

PATIENT
  Age: 78 Year
  Sex: Male

DRUGS (1)
  1. IMMUCYST       (BCG - IT (CONNAUGHT)),   AVENTIS PASTEUR LTD. [Suspect]
     Indication: BLADDER CANCER
     Dosage: 81 MG, I.VES., BLADDER
     Route: 043
     Dates: start: 20040623, end: 20040623

REACTIONS (5)
  - DIALYSIS [None]
  - RENAL FAILURE [None]
  - RESPIRATORY FAILURE [None]
  - SEPTIC SHOCK [None]
  - SHOCK [None]
